FAERS Safety Report 7655023-6 (Version None)
Quarter: 2011Q3

REPORT INFORMATION
  Report Type: 
  Country: None (occurrence: None)
  Receive Date: 20110728
  Receipt Date: 20110713
  Transmission Date: 20111222
  Serious: Yes (Hospitalization)
  Sender: FDA-Public Use
  Company Number: TCI2011A03631

PATIENT
  Age: 80 Year
  Sex: Male

DRUGS (3)
  1. CONIEL (BENIDIPINE HYDROCHLORIDE) [Concomitant]
  2. ACTOS [Suspect]
     Indication: DIABETES MELLITUS
     Dosage: 30 MG (30 MG, 1 D)
     Route: 048
     Dates: start: 20090428, end: 20110620
  3. MICARDIS [Concomitant]

REACTIONS (2)
  - BLADDER CANCER [None]
  - BENIGN PROSTATIC HYPERPLASIA [None]
